FAERS Safety Report 6269951-X (Version None)
Quarter: 2009Q3

REPORT INFORMATION
  Report Type: 
  Country: None (occurrence: None)
  Receive Date: 20090716
  Receipt Date: 20090708
  Transmission Date: 20100115
  Serious: Yes (Hospitalization)
  Sender: FDA-Public Use
  Company Number: FI-ROCHE-642769

PATIENT
  Sex: Female

DRUGS (3)
  1. KYTRIL [Suspect]
     Route: 048
  2. XELODA [Suspect]
     Indication: RECTAL CANCER
     Route: 048
     Dates: start: 20080523, end: 20080918
  3. OXALIPLATIN [Concomitant]
     Indication: RECTAL CANCER
     Route: 042
     Dates: start: 20080523, end: 20080918

REACTIONS (1)
  - ILEUS [None]
